FAERS Safety Report 5657586-9 (Version None)
Quarter: 2008Q1

REPORT INFORMATION
  Report Type: 
  Country: None (occurrence: None)
  Receive Date: 20080310
  Receipt Date: 20080227
  Transmission Date: 20080703
  Serious: Yes (Hospitalization)
  Sender: FDA-Public Use
  Company Number: ES-PFIZER INC-2008019893

PATIENT
  Sex: Male

DRUGS (3)
  1. FARMIBLASTINA [Suspect]
     Indication: MULTIPLE MYELOMA
     Dates: start: 20071204, end: 20071208
  2. VINCRISUL [Suspect]
     Indication: MULTIPLE MYELOMA
     Dates: start: 20071204, end: 20071208
  3. DEXAMETHASONE TAB [Suspect]
     Indication: MULTIPLE MYELOMA
     Dates: start: 20071204, end: 20071208

REACTIONS (2)
  - BACTEROIDES BACTERAEMIA [None]
  - ILEUS PARALYTIC [None]
